FAERS Safety Report 6917460-4 (Version None)
Quarter: 2010Q3

REPORT INFORMATION
  Report Type: 
  Country: None (occurrence: None)
  Receive Date: 20100810
  Receipt Date: 20100806
  Transmission Date: 20110219
  Serious: Yes (Death)
  Sender: FDA-Public Use
  Company Number: PHHY2010BR52074

PATIENT
  Sex: Male

DRUGS (2)
  1. AMLODIPINE BESYLATE AND VALSARTAN [Suspect]
     Dosage: 160/5 MG, UNK
  2. EXFORGE [Suspect]
     Dosage: 160/5 MG, UNK

REACTIONS (1)
  - DEATH [None]
